FAERS Safety Report 9172405 (Version 2)
Quarter: 2013Q4

REPORT INFORMATION
  Report Type: Spontaneous
  Country: GB (occurrence: GB)
  Receive Date: 20120911
  Receipt Date: 20131008
  Transmission Date: 20140711
  Serious: Yes (Hospitalization)
  Sender: FDA-Public Use
  Company Number: PHHY2012GB078427

PATIENT
  Age: 94 Year
  Sex: Female

DRUGS (10)
  1. SIMVASTATIN [Suspect]
     Indication: HYPERCHOLESTEROLAEMIA
     Dosage: 40 MG, UNK
     Route: 048
     Dates: start: 20100426
  2. SIMVASTATIN [Suspect]
     Dosage: 20 MG, UNK
     Route: 048
  3. SLOZEM [Suspect]
     Indication: HYPERTENSION
     Dosage: 120 MG, QD (IN THE MORNING)
     Route: 048
     Dates: start: 20100426
  4. ALLOPURINOL [Concomitant]
  5. ASPIRIN [Concomitant]
  6. FERROUS SULPHATE [Concomitant]
  7. FUROSEMIDE [Concomitant]
  8. MIRTAZAPINE [Concomitant]
  9. OMEPRAZOLE [Concomitant]
  10. RAMIPRIL [Concomitant]

REACTIONS (7)
  - Rhabdomyolysis [Recovering/Resolving]
  - Blood creatine phosphokinase increased [Unknown]
  - Mobility decreased [Recovering/Resolving]
  - Swelling face [Recovering/Resolving]
  - Contusion [Recovering/Resolving]
  - Fall [Unknown]
  - Drug interaction [Unknown]
